FAERS Safety Report 10599609 (Version 2)
Quarter: 2014Q4

REPORT INFORMATION
  Report Type: Spontaneous
  Country: BR (occurrence: BR)
  Receive Date: 20141121
  Receipt Date: 20141222
  Transmission Date: 20150529
  Serious: Yes (Other)
  Sender: FDA-Public Use
  Company Number: PHHY2014BR152915

PATIENT
  Sex: Male

DRUGS (1)
  1. SLOW K [Suspect]
     Active Substance: POTASSIUM CHLORIDE
     Indication: MUSCLE SPASMS
     Dosage: UNK DF, UNK
     Route: 065

REACTIONS (2)
  - Diabetes mellitus [Unknown]
  - Product use issue [Unknown]
